FAERS Safety Report 4771437-6 (Version None)
Quarter: 2005Q3

REPORT INFORMATION
  Report Type: 
  Country: None (occurrence: None)
  Receive Date: 20050914
  Receipt Date: 20050826
  Transmission Date: 20060218
  Serious: Yes (Hospitalization, Other)
  Sender: FDA-Public Use
  Company Number: USA0508106497

PATIENT
  Age: 54 Year
  Sex: Male

DRUGS (7)
  1. ZYPREXA [Suspect]
     Indication: POST-TRAUMATIC STRESS DISORDER
     Dosage: 30 MG DAY
  2. WELLBUTRIN [Concomitant]
  3. XANAX [Concomitant]
  4. TRAZADONE (TRAZODONE) [Concomitant]
  5. CELEXA [Concomitant]
  6. ULTRACET [Concomitant]
  7. TYLENOL W/ CODEINE NO. 3 [Concomitant]

REACTIONS (3)
  - BREAST MASS [None]
  - BREAST PAIN [None]
  - HYPERTROPHY BREAST [None]
